FAERS Safety Report 20356849 (Version 2)
Quarter: 2022Q1

REPORT INFORMATION
  Report Type: Spontaneous
  Country: US (occurrence: None)
  Receive Date: 20220120
  Receipt Date: 20220225
  Transmission Date: 20220423
  Serious: Yes (Other)
  Sender: FDA-Public Use
  Company Number: 2022A021993

PATIENT
  Age: 78 Year
  Sex: Female
  Weight: 40.8 kg

DRUGS (2)
  1. SYMBICORT [Suspect]
     Active Substance: BUDESONIDE\FORMOTEROL FUMARATE DIHYDRATE
     Indication: Chronic obstructive pulmonary disease
     Dosage: 160/4.5 UG. 2 PUFFS TWICE EACH DAY
     Route: 055
     Dates: start: 201011
  2. SYMBICORT [Suspect]
     Active Substance: BUDESONIDE\FORMOTEROL FUMARATE DIHYDRATE
     Indication: Chronic obstructive pulmonary disease
     Dosage: 160/4.5 UG. 2 PUFFS TWICE EACH DAY
     Route: 055
     Dates: start: 20220106

REACTIONS (3)
  - Lung carcinoma cell type unspecified recurrent [Recovered/Resolved]
  - Device use issue [Recovered/Resolved]
  - Product packaging quantity issue [Unknown]

NARRATIVE: CASE EVENT DATE: 20190101
